FAERS Safety Report 4448791-8 (Version None)
Quarter: 2004Q3

REPORT INFORMATION
  Report Type: 
  Country: None (occurrence: None)
  Receive Date: 20040909
  Receipt Date: 20040825
  Transmission Date: 20050211
  Serious: Yes (Hospitalization)
  Sender: FDA-Public Use
  Company Number: 04P-163-0270127-00

PATIENT
  Age: 78 Year
  Sex: Female
  Weight: 58.9676 kg

DRUGS (6)
  1. HUMIRA [Suspect]
     Indication: RHEUMATOID ARTHRITIS
     Dosage: SEE IMAGE
     Route: 058
     Dates: start: 20030101, end: 20031201
  2. HUMIRA [Suspect]
     Indication: RHEUMATOID ARTHRITIS
     Dosage: SEE IMAGE
     Route: 058
     Dates: start: 20031201, end: 20040701
  3. PREDNISONE [Concomitant]
  4. CLOPIDOGREL BISULFATE [Concomitant]
  5. ROFECOXIB [Concomitant]
  6. ALENDRONATE SODIUM [Concomitant]

REACTIONS (5)
  - DRUG EFFECT DECREASED [None]
  - LOCALISED INFECTION [None]
  - POOR PERIPHERAL CIRCULATION [None]
  - SKIN ULCER [None]
  - TOE AMPUTATION [None]
